FAERS Safety Report 8976444 (Version 1)
Quarter: 2012Q4

REPORT INFORMATION
  Report Type: 
  Country: US (occurrence: US)
  Receive Date: 20121220
  Receipt Date: 20121220
  Transmission Date: 20130627
  Serious: Yes (Hospitalization)
  Sender: FDA-Public Use
  Company Number: US-VIROPHARMA INCORPORATED-20121210CINRY3724

PATIENT
  Sex: Female
  Weight: 68.1 kg

DRUGS (12)
  1. CINRYZE (C1 ESTERASE INHIBITOR (HUMAN)) [Suspect]
     Indication: HEREDITARY ANGIOEDEMA
     Dates: start: 20111025, end: 20121110
  2. CINRYZE (C1 ESTERASE INHIBITOR (HUMAN)) [Suspect]
     Dates: start: 201211
  3. FIRAZYR [Concomitant]
     Indication: HEREDITARY ANGIOEDEMA
     Route: 058
  4. FLONASE [Concomitant]
     Indication: RHINITIS ALLERGIC
     Dosage: 2 SPRAYS IN EACH NOSTRIL
     Route: 045
  5. KALBITOR [Concomitant]
     Indication: HEREDITARY ANGIOEDEMA
     Route: 058
  6. ONDANSETRON [Concomitant]
     Indication: NAUSEA
     Route: 048
  7. OXYCODONE [Concomitant]
     Indication: PAIN
     Route: 048
  8. PROVENTIL [Concomitant]
     Indication: ASTHMA
     Dosage: 2 PUFFS
  9. SYMBICORT [Concomitant]
     Indication: ASTHMA
     Dosage: unknown
  10. TIZANIDINE [Concomitant]
     Indication: PRODUCT USED FOR UNKNOWN INDICATION
     Dosage: 1-2 tablets
     Route: 048
  11. TRAZODONE [Concomitant]
     Indication: INSOMNIA
     Route: 048
  12. ZYRTEC [Concomitant]
     Indication: RHINITIS ALLERGIC
     Route: 048

REACTIONS (6)
  - Endometriosis [Recovered/Resolved]
  - Condition aggravated [Recovered/Resolved]
  - Hereditary angioedema [Recovered/Resolved]
  - Therapy regimen changed [Not Recovered/Not Resolved]
  - Drug ineffective [Unknown]
  - Off label use [Not Recovered/Not Resolved]
